FAERS Safety Report 24398813 (Version 3)
Quarter: 2025Q1

REPORT INFORMATION
  Report Type: Spontaneous
  Country: BR (occurrence: BR)
  Receive Date: 20241004
  Receipt Date: 20250102
  Transmission Date: 20250409
  Serious: Yes (Other)
  Sender: TEVA
  Company Number: BR-TEVA-VS-3249167

PATIENT
  Age: 42 Year
  Sex: Male

DRUGS (2)
  1. AJOVY [Suspect]
     Active Substance: FREMANEZUMAB-VFRM
     Indication: Migraine
     Route: 065
     Dates: start: 20240401
  2. LOSARTAN POTASSIUM [Concomitant]
     Active Substance: LOSARTAN POTASSIUM
     Indication: Product used for unknown indication
     Route: 065

REACTIONS (4)
  - Confusional state [Unknown]
  - Injection site pruritus [Not Recovered/Not Resolved]
  - Injection site oedema [Not Recovered/Not Resolved]
  - Glucose tolerance impaired [Unknown]

NARRATIVE: CASE EVENT DATE: 20240101
